FAERS Safety Report 9364035 (Version 1)
Quarter: 2013Q2

REPORT INFORMATION
  Report Type: Spontaneous
  Country: US (occurrence: US)
  Receive Date: 20130624
  Receipt Date: 20130624
  Transmission Date: 20140414
  Serious: No
  Sender: FDA-Public Use
  Company Number: US-US-EMD SERONO, INC.-7097442

PATIENT
  Age: 65 Year
  Sex: Male

DRUGS (1)
  1. REBIF [Suspect]
     Indication: MULTIPLE SCLEROSIS
     Route: 058
     Dates: start: 20110121, end: 201304

REACTIONS (5)
  - Lower limb fracture [Recovered/Resolved]
  - Fall [Recovered/Resolved]
  - Multiple sclerosis [Unknown]
  - Injection site pain [Unknown]
  - Injection site erythema [Unknown]
